FAERS Safety Report 14536371 (Version 1)
Quarter: 2018Q1

REPORT INFORMATION
  Report Type: Spontaneous
  Country: US (occurrence: US)
  Receive Date: 20180215
  Receipt Date: 20180215
  Transmission Date: 20180509
  Serious: Yes (Other)
  Sender: FDA-Public Use
  Company Number: US-BAYER-2018-028570

PATIENT
  Sex: Female

DRUGS (1)
  1. AFRIN SINUS [Suspect]
     Active Substance: OXYMETAZOLINE HYDROCHLORIDE
     Indication: SINUS DISORDER
     Dosage: STARTED USING AFRIN WAS IN TWENTIES

REACTIONS (3)
  - Sinus operation [Unknown]
  - Off label use [None]
  - Drug dependence [Unknown]
